FAERS Safety Report 8288961-4 (Version None)
Quarter: 2012Q2

REPORT INFORMATION
  Report Type: 
  Country: None (occurrence: None)
  Receive Date: 20120412
  Receipt Date: 20120403
  Transmission Date: 20120825
  Serious: Yes (Disabling, Other)
  Sender: FDA-Public Use
  Company Number: 1248200

PATIENT
  Age: 50 Year
  Sex: Female
  Weight: 33.7476 kg

DRUGS (3)
  1. CYCLOPHOSPHAMIDE [Suspect]
     Indication: BREAST CANCER
     Dosage: 900 MG MILLIGRAM(S), INTRAVENOUS (NOT OTHERWISE SPECIFIED)
     Route: 042
     Dates: start: 20100901, end: 20101215
  2. DOCETAXEL [Suspect]
     Indication: BREAST CANCER
     Dosage: 140 MG MILLIGRAM(S), INTRAVENOUS (NOT OTHERWISE SPECIFIED)
     Route: 042
     Dates: start: 20100901, end: 20101215
  3. DOXORUBICIN HCL [Suspect]
     Indication: BREAST CANCER
     Dosage: 90 MG MILLIGRAM(S), INTRAVENOUS (NOT OTHERWISE SPECIFIED)
     Route: 042
     Dates: start: 20100901, end: 20101215

REACTIONS (1)
  - ANDROGENETIC ALOPECIA [None]
